FAERS Safety Report 4301313-4 (Version None)
Quarter: 2004Q1

REPORT INFORMATION
  Report Type: 
  Country: None (occurrence: None)
  Receive Date: 20040223
  Receipt Date: 20021223
  Transmission Date: 20041129
  Serious: No
  Sender: FDA-Public Use
  Company Number: US-GLAXOSMITHKLINE-A0390223A

PATIENT
  Age: 70 Year
  Sex: Female
  Weight: 86.8 kg

DRUGS (1)
  1. NAVELBINE [Suspect]
     Dosage: 50MG PER DAY
     Route: 042
     Dates: start: 20020830, end: 20021206

REACTIONS (1)
  - ABDOMINAL PAIN [None]
